FAERS Safety Report 7829270-4 (Version None)
Quarter: 2011Q4

REPORT INFORMATION
  Report Type: 
  Country: None (occurrence: None)
  Receive Date: 20111020
  Receipt Date: 20111006
  Transmission Date: 20120403
  Serious: Yes (Life-Threatening, Hospitalization, Other)
  Sender: FDA-Public Use
  Company Number: US-ELI_LILLY_AND_COMPANY-US201006004209

PATIENT
  Sex: Female

DRUGS (23)
  1. FORTEO [Suspect]
     Indication: OSTEOPOROSIS
     Dosage: 20 UG, QD
     Route: 065
  2. FORTEO [Suspect]
     Dosage: 20 UG, QD
     Route: 065
  3. THYROXIN [Concomitant]
  4. HYDROCODONE BITARTRATE [Concomitant]
  5. VITAMIN B-12 [Concomitant]
  6. CELEBREX [Concomitant]
  7. METOLAZONE [Concomitant]
  8. FLEXERIL [Concomitant]
  9. AMBIEN [Concomitant]
  10. ASPIRIN [Concomitant]
  11. PLAVIX [Concomitant]
     Dosage: UNK, UNKNOWN
  12. SERTRALINE HYDROCHLORIDE [Concomitant]
  13. GEMFIBROZIL [Concomitant]
  14. ATENOLOL [Concomitant]
  15. MIRAPEX [Concomitant]
  16. ASCORBIC ACID [Concomitant]
  17. CENTRUM SILVER [Concomitant]
  18. KLONOPIN [Concomitant]
  19. VITAMIN D [Concomitant]
  20. LIPITOR [Concomitant]
  21. PHENERGAN HCL [Concomitant]
  22. RANEXA [Concomitant]
  23. NITROGLYCERIN [Concomitant]
     Dosage: UNK, PRN

REACTIONS (16)
  - DYSPNOEA [None]
  - PRURITUS [None]
  - RESPIRATORY ARREST [None]
  - ANAEMIA [None]
  - ALTERED STATE OF CONSCIOUSNESS [None]
  - OEDEMA [None]
  - DIABETES MELLITUS [None]
  - RASH [None]
  - LIMB DISCOMFORT [None]
  - PARKINSON'S DISEASE [None]
  - TREMOR [None]
  - BLOOD GLUCOSE DECREASED [None]
  - INJECTION SITE HAEMATOMA [None]
  - OEDEMA PERIPHERAL [None]
  - CHEST PAIN [None]
  - ANXIETY [None]
